FAERS Safety Report 5731196-7 (Version None)
Quarter: 2008Q2

REPORT INFORMATION
  Report Type: 
  Country: None (occurrence: None)
  Receive Date: 20080507
  Receipt Date: 20080416
  Transmission Date: 20081010
  Serious: No
  Sender: FDA-Public Use
  Company Number: US-BOEHRINGER INGELHEIM GMBH, GERMANY-2008-BP-06065BP

PATIENT
  Sex: Female

DRUGS (3)
  1. MIRAPEX [Suspect]
     Indication: RESTLESS LEGS SYNDROME
     Route: 048
     Dates: start: 20071001
  2. FLUOXETINE [Concomitant]
     Indication: ANTIDEPRESSANT THERAPY
  3. PROVERA [Concomitant]
     Indication: MENOPAUSE

REACTIONS (1)
  - DRUG INEFFECTIVE [None]
